FAERS Safety Report 8789588 (Version 1)
Quarter: 2012Q4

REPORT INFORMATION
  Report Type: Spontaneous
  Country: US (occurrence: None)
  Receive Date: 20120905
  Receipt Date: 20120905
  Transmission Date: 20130627
  Serious: Yes (Other)
  Sender: FDA-Public Use
  Company Number: FK201202466

PATIENT
  Age: 18 Year
  Sex: Male

DRUGS (7)
  1. VANCOMYCIN [Suspect]
     Indication: STAPHYLOCOCCAL INFECTION
     Dosage: 12 hours, Intravenous (not otherwise specified)
     Route: 042
  2. VANCOMYCIN [Suspect]
     Indication: STAPHYLOCOCCAL INFECTION
     Dosage: 12 hours, Intravenous (not otherwise specified)
     Route: 042
  3. VANCOMYCIN [Suspect]
     Indication: STAPHYLOCOCCAL INFECTION
     Dosage: perioperatively (not otherwise specified)
     Route: 042
  4. RIFAMPIN [Suspect]
     Dosage: Every 12 hours
     Route: 048
  5. DAPTOMYCIN (DAPTOMYCIN) [Concomitant]
  6. MEROPENEM (MEROPENEM) [Concomitant]
  7. TELAVANCIN [Concomitant]

REACTIONS (6)
  - Neutropenia [None]
  - Leukopenia [None]
  - Bone marrow failure [None]
  - Pruritus generalised [None]
  - Dysgeusia [None]
  - Decreased appetite [None]
